FAERS Safety Report 9913450 (Version 1)
Quarter: 2014Q1

REPORT INFORMATION
  Report Type: Spontaneous
  Country: GB (occurrence: GB)
  Receive Date: 20140220
  Receipt Date: 20140220
  Transmission Date: 20141002
  Serious: Yes (Hospitalization)
  Sender: FDA-Public Use
  Company Number: GB-ASTELLAS-2014EU001425

PATIENT
  Age: 75 Year
  Sex: Male

DRUGS (1)
  1. BETMIGA [Suspect]
     Dosage: UNK
     Route: 065

REACTIONS (2)
  - Surgery [Unknown]
  - Muscle spasms [Unknown]
